FAERS Safety Report 8800168 (Version 1)
Quarter: 2012Q4

REPORT INFORMATION
  Report Type: Report from Study
  Country: HU (occurrence: HU)
  Receive Date: 20120921
  Receipt Date: 20120921
  Transmission Date: 20130627
  Serious: Yes (Other)
  Sender: FDA-Public Use
  Company Number: HU-ROCHE-1126853

PATIENT
  Sex: Female

DRUGS (1)
  1. XELODA [Suspect]
     Indication: COLORECTAL CANCER
     Route: 048
     Dates: start: 20090106, end: 200903

REACTIONS (4)
  - Back pain [Unknown]
  - Neuritis [Unknown]
  - Spinal pain [Unknown]
  - Lymphadenitis [Unknown]
